FAERS Safety Report 24192777 (Version 2)
Quarter: 2024Q3

REPORT INFORMATION
  Report Type: Report from Study
  Country: US (occurrence: US)
  Receive Date: 20240809
  Receipt Date: 20240830
  Transmission Date: 20241017
  Serious: Yes (Hospitalization)
  Sender: ROCHE
  Company Number: US-ROCHE-3393365

PATIENT
  Age: 47 Year
  Sex: Male

DRUGS (3)
  1. RITUXAN [Suspect]
     Active Substance: RITUXIMAB
     Indication: Myelitis transverse
     Dosage: STRENGTH: 10 MG/ML. INFUSE 1000 MG TOTAL EVERY 14 DAYS, ON DAY 1 AND 15 EVERY 6 MONTHS.
     Route: 041
  2. RITUXAN [Suspect]
     Active Substance: RITUXIMAB
     Route: 042
     Dates: start: 2021, end: 20240329
  3. LEVOTHYROXINE [Concomitant]
     Active Substance: LEVOTHYROXINE\LEVOTHYROXINE SODIUM
     Route: 048

REACTIONS (6)
  - Off label use [Unknown]
  - Urticaria [Recovered/Resolved]
  - Cellulitis [Recovered/Resolved]
  - Pneumonia [Recovering/Resolving]
  - Drug hypersensitivity [Unknown]
  - Head injury [Unknown]

NARRATIVE: CASE EVENT DATE: 20230701
